FAERS Safety Report 14735303 (Version 1)
Quarter: 2018Q2

REPORT INFORMATION
  Report Type: Spontaneous
  Country: ES (occurrence: ES)
  Receive Date: 20180409
  Receipt Date: 20180409
  Transmission Date: 20180711
  Serious: Yes (Other)
  Sender: FDA-Public Use
  Company Number: ES-SA-2018SA101167

PATIENT
  Age: 46 Year
  Sex: Male

DRUGS (2)
  1. SOLOSTAR [Suspect]
     Active Substance: DEVICE
     Indication: TYPE 2 DIABETES MELLITUS
  2. TOUJEO [Suspect]
     Active Substance: INSULIN GLARGINE
     Indication: TYPE 2 DIABETES MELLITUS
     Route: 058

REACTIONS (3)
  - Limb injury [Recovering/Resolving]
  - Blood glucose increased [Not Recovered/Not Resolved]
  - Wound [Recovered/Resolved]
